FAERS Safety Report 7467315-4 (Version None)
Quarter: 2011Q2

REPORT INFORMATION
  Report Type: 
  Country: None (occurrence: None)
  Receive Date: 20110509
  Receipt Date: 20101207
  Transmission Date: 20111010
  Serious: Yes (Hospitalization, Other)
  Sender: FDA-Public Use
  Company Number: US-ALEXION-A201001415

PATIENT
  Sex: Female

DRUGS (7)
  1. FLUCONAZOLE [Concomitant]
     Indication: PROPHYLAXIS
     Dosage: UNK
     Route: 048
  2. ANTI-THYMOCYTE GLOBULIN RABBIT NOS [Suspect]
     Dosage: UNK
     Dates: start: 20101019
  3. SOLIRIS [Suspect]
     Indication: PAROXYSMAL NOCTURNAL HAEMOGLOBINURIA
     Dosage: 600 MG, QW
     Route: 042
     Dates: start: 20100107, end: 20100201
  4. SOLIRIS [Suspect]
     Dosage: 900 MG, UNK
     Dates: end: 20100930
  5. BACTRIM [Concomitant]
     Indication: PROPHYLAXIS
     Dosage: UNK
     Route: 048
  6. PREDNISONE [Suspect]
     Dosage: 20 MG, QD
     Route: 048
  7. ACYCLOVIR [Concomitant]
     Indication: PROPHYLAXIS
     Dosage: UNK
     Route: 048

REACTIONS (11)
  - MALAISE [None]
  - PLATELET COUNT DECREASED [None]
  - DIARRHOEA [None]
  - FATIGUE [None]
  - DRUG INTOLERANCE [None]
  - HYPOTENSION [None]
  - DIABETES MELLITUS [None]
  - HAEMOGLOBIN DECREASED [None]
  - VOMITING [None]
  - RASH [None]
  - PYREXIA [None]
